FAERS Safety Report 10573573 (Version 2)
Quarter: 2014Q4

REPORT INFORMATION
  Report Type: Spontaneous
  Country: US (occurrence: US)
  Receive Date: 20141110
  Receipt Date: 20141222
  Transmission Date: 20150529
  Serious: No
  Sender: FDA-Public Use
  Company Number: US-JNJFOC-20141008054

PATIENT

DRUGS (1)
  1. INVEGA [Suspect]
     Active Substance: PALIPERIDONE
     Indication: PRODUCT USED FOR UNKNOWN INDICATION
     Route: 048

REACTIONS (2)
  - Wrong technique in drug usage process [Unknown]
  - Abnormal behaviour [Unknown]
